FAERS Safety Report 6361212-3 (Version None)
Quarter: 2009Q3

REPORT INFORMATION
  Report Type: 
  Country: None (occurrence: None)
  Receive Date: 20090918
  Receipt Date: 20090907
  Transmission Date: 20100115
  Serious: Yes (Other)
  Sender: FDA-Public Use
  Company Number: CN-PFIZER INC-2009265733

PATIENT

DRUGS (1)
  1. VFEND [Suspect]

REACTIONS (1)
  - ATRIAL FIBRILLATION [None]
